FAERS Safety Report 6745175-4 (Version None)
Quarter: 2010Q2

REPORT INFORMATION
  Report Type: 
  Country: None (occurrence: None)
  Receive Date: 20100526
  Receipt Date: 20100511
  Transmission Date: 20101027
  Serious: Yes (Life-Threatening)
  Sender: FDA-Public Use
  Company Number: US-1181771

PATIENT
  Sex: Female
  Weight: 73.9363 kg

DRUGS (1)
  1. TRAVATAN [Suspect]
     Indication: GLAUCOMA
     Dosage: (1 GTT OU QHS OPHTHALMIC)
     Route: 047
     Dates: start: 20100423, end: 20100423

REACTIONS (5)
  - EYE SWELLING [None]
  - LIP SWELLING [None]
  - PRURITUS GENERALISED [None]
  - SWELLING FACE [None]
  - THROAT TIGHTNESS [None]
